FAERS Safety Report 6506224-1 (Version None)
Quarter: 2009Q4

REPORT INFORMATION
  Report Type: 
  Country: None (occurrence: None)
  Receive Date: 20091218
  Receipt Date: 20091211
  Transmission Date: 20100525
  Serious: Yes (Hospitalization)
  Sender: FDA-Public Use
  Company Number: BE-B.I. PHARMACEUTICALS,INC./RIDGEFIELD-2009-BL-00233BL

PATIENT
  Age: 80 Year
  Sex: Female

DRUGS (2)
  1. MICARDIS [Suspect]
     Indication: HYPERTENSION
  2. ALDACTONE [Suspect]
     Indication: HYPERTENSION

REACTIONS (4)
  - ASTHENIA [None]
  - DEHYDRATION [None]
  - HYPERKALAEMIA [None]
  - MUSCULOSKELETAL DISCOMFORT [None]
